FAERS Safety Report 20415857 (Version 1)
Quarter: 2022Q1

REPORT INFORMATION
  Report Type: Spontaneous
  Country: CA (occurrence: CA)
  Receive Date: 20220202
  Receipt Date: 20220202
  Transmission Date: 20220423
  Serious: Yes (Hospitalization, Other)
  Sender: FDA-Public Use
  Company Number: CA-TEVA-2022-CA-2003505

PATIENT
  Age: 32 Year
  Sex: Female
  Weight: 52 kg

DRUGS (7)
  1. MESALAMINE [Suspect]
     Active Substance: MESALAMINE
     Indication: Colitis ulcerative
     Dosage: 1 DOSAGE FORMS DAILY;
     Route: 065
  2. VITAMIN D [Suspect]
     Active Substance: VITAMIN D NOS
     Indication: Multiple sclerosis
     Dosage: 1000 IU (INTERNATIONAL UNIT) DAILY;
     Route: 065
  3. VITAMIN D [Suspect]
     Active Substance: VITAMIN D NOS
     Route: 065
  4. FOLIC ACID/MINERALS [Concomitant]
     Indication: Pregnancy
     Route: 065
  5. IRON [Concomitant]
     Active Substance: IRON
     Indication: Pregnancy
     Route: 065
  6. MAGNESIUM [Concomitant]
     Active Substance: MAGNESIUM
     Indication: Pregnancy
     Route: 065
  7. NICOTINAMIDE [Concomitant]
     Active Substance: NIACINAMIDE
     Indication: Pregnancy
     Route: 065

REACTIONS (2)
  - Intestinal obstruction [Recovered/Resolved]
  - Pregnancy [Recovered/Resolved]
